FAERS Safety Report 18694071 (Version 1)
Quarter: 2021Q1

REPORT INFORMATION
  Report Type: Spontaneous
  Country: US (occurrence: US)
  Receive Date: 20210104
  Receipt Date: 20210104
  Transmission Date: 20210419
  Serious: No
  Sender: FDA-Public Use
  Company Number: US-HORIZON-2020HZN02859

PATIENT
  Age: 19 Year
  Sex: Male

DRUGS (6)
  1. BACTRIM [Concomitant]
     Active Substance: SULFAMETHOXAZOLE\TRIMETHOPRIM
     Dosage: 400MG?80MG TABLET
  2. ACTIMMUNE [Suspect]
     Active Substance: INTERFERON GAMMA-1B
     Indication: PULMONARY FIBROSIS
     Dosage: WITHDRAW 0.4 ML (80 MCG) AND INJECT UNDER THE SKIN THREE TIMES WEEKLY ON MONDAY, WEDNESDAY, AND F...
     Route: 058
  3. MESALAMINE. [Concomitant]
     Active Substance: MESALAMINE
     Dosage: 1.2G TABLET DR
  4. IMURAN [Concomitant]
     Active Substance: AZATHIOPRINE
     Dosage: 50MG TABLET
  5. DRISDOL [Concomitant]
     Active Substance: ERGOCALCIFEROL
     Dosage: 1250??G CAPSULE
  6. ITRACONAZOLE. [Concomitant]
     Active Substance: ITRACONAZOLE
     Dosage: 100MG CAPSULE

REACTIONS (3)
  - Headache [Recovered/Resolved]
  - Gastrointestinal inflammation [Unknown]
  - Off label use [Not Recovered/Not Resolved]

NARRATIVE: CASE EVENT DATE: 202011
